FAERS Safety Report 20359104 (Version 6)
Quarter: 2022Q2

REPORT INFORMATION
  Report Type: Spontaneous
  Country: US (occurrence: US)
  Receive Date: 20220120
  Receipt Date: 20220415
  Transmission Date: 20220721
  Serious: Yes (Other)
  Sender: FDA-Public Use
  Company Number: US-GLAXOSMITHKLINE-US2022010181

PATIENT
  Age: 63 Year
  Sex: Female

DRUGS (4)
  1. ZEJULA [Suspect]
     Active Substance: NIRAPARIB
     Indication: Ovarian cancer
     Dosage: 300 MG, QD
     Dates: start: 202112
  2. ZEJULA [Suspect]
     Active Substance: NIRAPARIB
     Dosage: 300 MG, QD
     Route: 048
     Dates: start: 20220103
  3. ZEJULA [Suspect]
     Active Substance: NIRAPARIB
     Dosage: 300 MG, QD
     Route: 048
  4. ZEJULA [Suspect]
     Active Substance: NIRAPARIB
     Dosage: 200 MG, QD
     Dates: end: 20220405

REACTIONS (12)
  - Malignant neoplasm progression [Unknown]
  - Hepatic neoplasm [Unknown]
  - Abdominal neoplasm [Unknown]
  - Middle insomnia [Unknown]
  - Platelet count decreased [Unknown]
  - Hypertension [Unknown]
  - Central venous catheterisation [Unknown]
  - Nasopharyngitis [Unknown]
  - Parosmia [Unknown]
  - Weight decreased [Unknown]
  - Pruritus [Unknown]
  - Photosensitivity reaction [Unknown]

NARRATIVE: CASE EVENT DATE: 20220101
